FAERS Safety Report 25591304 (Version 1)
Quarter: 2025Q3

REPORT INFORMATION
  Report Type: Spontaneous
  Country: GB (occurrence: GB)
  Receive Date: 20250722
  Receipt Date: 20250722
  Transmission Date: 20251021
  Serious: Yes (Hospitalization, Other)
  Sender: TEVA
  Company Number: None

PATIENT
  Age: 66 Year
  Sex: Female

DRUGS (6)
  1. BISOPROLOL [Suspect]
     Active Substance: BISOPROLOL
     Indication: Tachycardia
     Dosage: DAILY DOSAGE: 5MG
     Route: 065
     Dates: end: 20250704
  2. BECLOMETHASONE DIPROPIONATE\FORMOTEROL FUMARATE\GLYCOPYRROLATE [Concomitant]
     Active Substance: BECLOMETHASONE DIPROPIONATE\FORMOTEROL FUMARATE\GLYCOPYRROLATE
     Indication: Asthma-chronic obstructive pulmonary disease overlap syndrome
  3. OMEPRAZOLE [Concomitant]
     Active Substance: OMEPRAZOLE
     Indication: Product used for unknown indication
  4. CETIRIZINE [Concomitant]
     Active Substance: CETIRIZINE HYDROCHLORIDE
     Indication: Multiple allergies
  5. RIVAROXABAN [Concomitant]
     Active Substance: RIVAROXABAN
     Indication: Cerebrovascular accident
     Route: 065
     Dates: end: 20220922
  6. BEZAFIBRATE [Concomitant]
     Active Substance: BEZAFIBRATE
     Indication: Autoimmune cholangitis
     Route: 065

REACTIONS (11)
  - Abdominal discomfort [Unknown]
  - Hypertension [Recovered/Resolved]
  - Eye pruritus [Unknown]
  - Rhinorrhoea [Unknown]
  - Fatigue [Unknown]
  - Chronic obstructive pulmonary disease [Unknown]
  - Chest pain [Unknown]
  - Dizziness [Unknown]
  - Alopecia [Unknown]
  - Dry mouth [Unknown]
  - Therapy change [Unknown]
